FAERS Safety Report 7226485-3 (Version None)
Quarter: 2011Q1

REPORT INFORMATION
  Report Type: 
  Country: None (occurrence: None)
  Receive Date: 20110114
  Receipt Date: 20101223
  Transmission Date: 20110831
  Serious: No
  Sender: FDA-Public Use
  Company Number: US-B.I. PHARMACEUTICALS,INC./RIDGEFIELD-2011-BP-00005BP

PATIENT
  Age: 80 Year
  Sex: Female

DRUGS (6)
  1. OXYBUTYNIN CHLORIDE [Concomitant]
     Indication: BLADDER DISORDER
  2. SPIRIVA [Suspect]
     Indication: CHRONIC OBSTRUCTIVE PULMONARY DISEASE
     Dosage: 18 MCG
     Route: 055
     Dates: start: 20070101
  3. PRAVASTATIN [Concomitant]
     Indication: BLOOD CHOLESTEROL INCREASED
  4. ATENOLOL [Concomitant]
     Indication: HYPERTENSION
  5. ASPIRIN [Concomitant]
     Indication: PROPHYLAXIS
  6. LIDODERM [Concomitant]
     Indication: ARTHRALGIA

REACTIONS (3)
  - ROTATOR CUFF SYNDROME [None]
  - FALL [None]
  - CATARACT [None]
